FAERS Safety Report 8442775-0 (Version None)
Quarter: 2012Q2

REPORT INFORMATION
  Report Type: 
  Country: None (occurrence: None)
  Receive Date: 20120615
  Receipt Date: 20120605
  Transmission Date: 20120825
  Serious: Yes (Hospitalization)
  Sender: FDA-Public Use
  Company Number: US-AMGEN-US273409

PATIENT
  Age: 60 Year
  Sex: Male

DRUGS (17)
  1. ONDANSETRON HCL [Concomitant]
     Dosage: 8 MG, UNK
     Dates: start: 20080328
  2. BC MULTI SYMPTOM COLD [Concomitant]
  3. CIPROFLOXACIN [Concomitant]
     Dosage: 500 MG, UNK
     Dates: start: 20080331
  4. SODIUM CHLORIDE [Concomitant]
     Dosage: UNK UNK, UNK
     Dates: start: 20080327
  5. MANNITOL [Concomitant]
     Dosage: 12.5 G, UNK
     Dates: start: 20080327
  6. CISPLATIN [Concomitant]
     Dosage: UNK
     Dates: start: 20080327, end: 20080327
  7. ALBUTEROL SULATE [Concomitant]
     Dosage: UNK
     Route: 055
     Dates: start: 19850101
  8. MORPHINE SULFATE [Concomitant]
     Dosage: 15 MG, Q12H
     Dates: start: 20080221
  9. DEXAMETHASONE [Concomitant]
     Dosage: 10 MG, UNK
     Route: 042
     Dates: start: 20080327
  10. PALONOSETRON HYDROCHLORIDE [Concomitant]
     Dosage: .25 MG, UNK
     Dates: start: 20080327
  11. ISRADIPINE [Concomitant]
     Dosage: 5 MG, UNK
     Dates: start: 20020101
  12. GABAPENTIN [Concomitant]
  13. HYDROCODONE [Concomitant]
     Dosage: UNK
     Dates: start: 20071126
  14. PANTOPRAZOLE SODIUM [Concomitant]
     Dosage: 40 MG, UNK
     Dates: start: 20071126
  15. FLUTICASONE PROPIONATE [Concomitant]
     Dosage: UNK
     Route: 055
     Dates: start: 19850101
  16. PANITUMUMAB [Suspect]
     Indication: HEAD AND NECK CANCER
     Dosage: 675 MG, Q3WK
     Route: 042
     Dates: start: 20080327
  17. DOCETAXEL [Concomitant]
     Dosage: UNK
     Dates: start: 20080327, end: 20080327

REACTIONS (2)
  - PANCYTOPENIA [None]
  - ACUTE MYOCARDIAL INFARCTION [None]
